FAERS Safety Report 4427975-9 (Version None)
Quarter: 2004Q3

REPORT INFORMATION
  Report Type: 
  Country: None (occurrence: None)
  Receive Date: 20040813
  Receipt Date: 20040730
  Transmission Date: 20050211
  Serious: Yes (Death, Life-Threatening, Hospitalization)
  Sender: FDA-Public Use
  Company Number: 2004-0007108

PATIENT
  Age: 44 Year
  Sex: Male
  Weight: 58.9676 kg

DRUGS (5)
  1. VIREAD [Suspect]
     Indication: HIV INFECTION
     Dosage: 300 MG, 1 IN 1 D, ORAL
     Route: 048
     Dates: start: 20040419, end: 20040505
  2. VIDEX EC [Concomitant]
  3. LEXIVA (PROTEASE INHIBITORS) [Concomitant]
  4. NORVIR [Concomitant]
  5. BACTRIM DS [Concomitant]

REACTIONS (4)
  - HAEMODIALYSIS [None]
  - LUNG ABSCESS [None]
  - MULTI-ORGAN FAILURE [None]
  - RENAL FAILURE ACUTE [None]
